FAERS Safety Report 4625576-0 (Version None)
Quarter: 2005Q1

REPORT INFORMATION
  Report Type: 
  Country: None (occurrence: None)
  Receive Date: 20050330
  Receipt Date: 20050311
  Transmission Date: 20050727
  Serious: Yes (Death, Hospitalization)
  Sender: FDA-Public Use
  Company Number: EWC050343152

PATIENT
  Age: 51 Year
  Sex: Female

DRUGS (5)
  1. XIGRIS [Suspect]
     Indication: UROSEPSIS
     Dosage: 24 UG/KG/HR
     Dates: start: 20050227, end: 20050228
  2. MERONEM (MEROPENEM) [Concomitant]
  3. INOTROPES [Concomitant]
  4. CORTICOIDS [Concomitant]
  5. VASOPRESSOR AGENTS [Concomitant]

REACTIONS (1)
  - DEATH [None]
